FAERS Safety Report 8916846 (Version 2)
Quarter: 2012Q4

REPORT INFORMATION
  Report Type: 
  Country: US (occurrence: US)
  Receive Date: 20121120
  Receipt Date: 20121218
  Transmission Date: 20130627
  Serious: Yes (Hospitalization)
  Sender: FDA-Public Use
  Company Number: US-009507513-1211USA006678

PATIENT
  Age: 62 Year

DRUGS (3)
  1. SAPHRIS [Suspect]
     Indication: SCHIZOAFFECTIVE DISORDER
     Dosage: 5 mg, UNK
     Dates: start: 20120927, end: 20121002
  2. SEROQUEL [Concomitant]
  3. PAXIL [Concomitant]

REACTIONS (2)
  - Convulsion [Recovered/Resolved]
  - Off label use [Unknown]
